FAERS Safety Report 19148655 (Version 1)
Quarter: 2021Q2

REPORT INFORMATION
  Report Type: Spontaneous
  Country: US (occurrence: US)
  Receive Date: 20210416
  Receipt Date: 20210416
  Transmission Date: 20210717
  Serious: No
  Sender: FDA-Public Use
  Company Number: US-NEUROCRINE BIOSCIENCES INC.-2021NBI01651

PATIENT

DRUGS (3)
  1. INVEGA [Concomitant]
     Active Substance: PALIPERIDONE
     Dosage: UNK
     Route: 065
  2. INGREZZA [Suspect]
     Active Substance: VALBENAZINE
     Indication: PRODUCT USED FOR UNKNOWN INDICATION
     Dosage: 80 MILLIGRAM
     Route: 048
  3. TRINAZ [Concomitant]
     Dosage: UNK

REACTIONS (2)
  - Decreased activity [Unknown]
  - Vision blurred [Recovering/Resolving]
